FAERS Safety Report 5060742-4 (Version None)
Quarter: 2006Q2

REPORT INFORMATION
  Report Type: 
  Country: None (occurrence: None)
  Receive Date: 20060630
  Receipt Date: 20060314
  Transmission Date: 20061013
  Serious: Yes (Hospitalization, Other)
  Sender: FDA-Public Use
  Company Number: US200603003529

PATIENT
  Age: 57 Year
  Sex: Female

DRUGS (2)
  1. HUMALOG [Suspect]
     Dosage: AS NEEDED
     Dates: start: 19910101
  2. HUMULIN U [Suspect]
     Dosage: 35 U, 2/D
     Dates: start: 19910101

REACTIONS (8)
  - BLOOD GLUCOSE DECREASED [None]
  - BLOOD GLUCOSE INCREASED [None]
  - BLOOD KETONE BODY [None]
  - DIABETIC KETOACIDOSIS [None]
  - GRIP STRENGTH DECREASED [None]
  - KETOACIDOSIS [None]
  - MOTOR DYSFUNCTION [None]
  - PERIPHERAL MOTOR NEUROPATHY [None]
